FAERS Safety Report 8299663-2 (Version None)
Quarter: 2012Q2

REPORT INFORMATION
  Report Type: 
  Country: None (occurrence: None)
  Receive Date: 20120419
  Receipt Date: 20120412
  Transmission Date: 20120825
  Serious: Yes (Hospitalization)
  Sender: FDA-Public Use
  Company Number: CA-ELI_LILLY_AND_COMPANY-CA201204004605

PATIENT
  Age: 83 Year
  Sex: Male

DRUGS (9)
  1. GABAPENTIN [Concomitant]
  2. CALCIUM CARBONATE [Concomitant]
  3. LASIX [Concomitant]
  4. FORTEO [Suspect]
     Indication: OSTEOPOROSIS
     Dosage: 20 UG, QD
     Route: 058
     Dates: start: 20110314, end: 20110516
  5. TYLENOL W/ CODEINE NO. 3 [Concomitant]
  6. FORTEO [Suspect]
     Dosage: 20 UG, QD
     Route: 058
     Dates: start: 20110601, end: 20111109
  7. KAYEXALATE [Concomitant]
  8. WARFARIN SODIUM [Concomitant]
  9. VITAMIN D [Concomitant]

REACTIONS (3)
  - FALL [None]
  - CELLULITIS [None]
  - LACERATION [None]
